FAERS Safety Report 12758368 (Version 2)
Quarter: 2018Q1

REPORT INFORMATION
  Report Type: Spontaneous
  Country: US (occurrence: US)
  Receive Date: 20160919
  Receipt Date: 20180101
  Transmission Date: 20180508
  Serious: Yes (Hospitalization)
  Sender: FDA-Public Use
  Company Number: US-ASTELLAS-2016US035477

PATIENT
  Age: 74 Year
  Sex: Male

DRUGS (1)
  1. XTANDI [Suspect]
     Active Substance: ENZALUTAMIDE
     Indication: PROSTATE CANCER
     Route: 048
     Dates: start: 20160415

REACTIONS (8)
  - Nausea [Unknown]
  - Vomiting [Unknown]
  - Amnesia [Unknown]
  - Pain in extremity [Unknown]
  - Accident [Unknown]
  - Asthenia [Unknown]
  - Retching [Unknown]
  - Nail discolouration [Unknown]

NARRATIVE: CASE EVENT DATE: 20160909
